FAERS Safety Report 6716989-1 (Version None)
Quarter: 2010Q2

REPORT INFORMATION
  Report Type: 
  Country: None (occurrence: None)
  Receive Date: 20100510
  Receipt Date: 20100510
  Transmission Date: 20101027
  Serious: Yes (Other)
  Sender: FDA-Public Use
  Company Number: None

PATIENT
  Age: 2 Month
  Sex: Male
  Weight: 6.3504 kg

DRUGS (1)
  1. TYLENOL INFANTS DROPS CHERRY DYE 80MGS PER 0.8 TYLENOL [Suspect]
     Indication: PAIN
     Dosage: 0.8 EVERY 4 HOURS PO
     Route: 048
     Dates: start: 20100415, end: 20100415

REACTIONS (4)
  - AURICULAR SWELLING [None]
  - EYE SWELLING [None]
  - RASH [None]
  - SECRETION DISCHARGE [None]
